FAERS Safety Report 7935938-1 (Version None)
Quarter: 2011Q4

REPORT INFORMATION
  Report Type: 
  Country: None (occurrence: None)
  Receive Date: 20111123
  Receipt Date: 20111116
  Transmission Date: 20120403
  Serious: Yes (Other)
  Sender: FDA-Public Use
  Company Number: US-CELGENEUS-163-20785-11093048

PATIENT
  Sex: Male

DRUGS (8)
  1. THALOMID [Suspect]
     Indication: MULTIPLE MYELOMA
     Dosage: 50 MILLIGRAM
     Route: 048
     Dates: start: 20110727, end: 20110730
  2. MS CONTIN [Concomitant]
     Indication: PAIN
     Dosage: 30 MILLIGRAM
     Route: 065
  3. PROTONIX [Concomitant]
     Dosage: 40 MILLIGRAM
     Route: 065
  4. DILAUDID [Concomitant]
     Indication: PAIN
     Dosage: 2-6 MG
     Route: 048
  5. COLACE [Concomitant]
     Route: 065
  6. DECADRON [Concomitant]
     Indication: DRUG THERAPY
     Dosage: 4 MILLIGRAM
     Route: 065
  7. ASPIRIN [Suspect]
     Indication: DRUG THERAPY
     Dosage: 81 MILLIGRAM
     Route: 065
  8. THALOMID [Suspect]
     Indication: PLASMACYTOMA
     Dosage: 50 MILLIGRAM
     Route: 048

REACTIONS (1)
  - SCLERAL HAEMORRHAGE [None]
